FAERS Safety Report 8925656 (Version 1)
Quarter: 2012Q4

REPORT INFORMATION
  Report Type: 
  Country: FR (occurrence: FR)
  Receive Date: 20121126
  Receipt Date: 20121126
  Transmission Date: 20130627
  Serious: Yes (Hospitalization)
  Sender: FDA-Public Use
  Company Number: FR-BRISTOL-MYERS SQUIBB COMPANY-17137498

PATIENT
  Age: 46 Year
  Sex: Female

DRUGS (11)
  1. ABILIFY [Suspect]
     Indication: BIPOLAR DISORDER
     Route: 048
  2. STELARA [Suspect]
     Indication: PSORIASIS
     Dosage: solution for injection
     Route: 058
     Dates: start: 201204, end: 201205
  3. LOXAPAC [Suspect]
  4. MESTINON [Concomitant]
  5. TANGANIL [Concomitant]
  6. HAVLANE [Concomitant]
  7. LEPTICUR [Concomitant]
  8. INEXIUM [Concomitant]
  9. TAHOR [Concomitant]
  10. LYSANXIA [Concomitant]
  11. DEPAKOTE [Concomitant]

REACTIONS (1)
  - Pulmonary embolism [Not Recovered/Not Resolved]
